FAERS Safety Report 18110179 (Version 1)
Quarter: 2020Q3

REPORT INFORMATION
  Report Type: Spontaneous
  Country: GB (occurrence: GB)
  Receive Date: 20200804
  Receipt Date: 20200804
  Transmission Date: 20201103
  Serious: Yes (Other)
  Sender: FDA-Public Use
  Company Number: GB-DEXPHARM-20200665

PATIENT
  Age: 48 Year
  Sex: Male
  Weight: 83 kg

DRUGS (3)
  1. MORPHINE [Concomitant]
     Active Substance: MORPHINE
  2. PARACETAMOL [Concomitant]
     Active Substance: ACETAMINOPHEN
  3. VENLAFAXINE [Suspect]
     Active Substance: VENLAFAXINE HYDROCHLORIDE
     Indication: DEPRESSION SUICIDAL
     Route: 048
     Dates: start: 20200603, end: 20200622

REACTIONS (2)
  - Hyperhidrosis [Not Recovered/Not Resolved]
  - Anxiety [Recovered/Resolved]

NARRATIVE: CASE EVENT DATE: 20200604
